FAERS Safety Report 9260953 (Version 1)
Quarter: 2013Q2

REPORT INFORMATION
  Report Type: Spontaneous
  Country: US (occurrence: US)
  Receive Date: 20130429
  Receipt Date: 20130429
  Transmission Date: 20140414
  Serious: No
  Sender: FDA-Public Use
  Company Number: US-AMGEN-USASP2012039002

PATIENT
  Age: 82 Year
  Sex: Female

DRUGS (2)
  1. SENSIPAR [Suspect]
     Indication: PERITONEAL DIALYSIS
     Dosage: 60 MG, QD
     Dates: start: 20120614, end: 20120615
  2. SENSIPAR [Suspect]
     Indication: HYPERPARATHYROIDISM SECONDARY

REACTIONS (3)
  - Bone pain [Recovered/Resolved]
  - Nausea [Recovered/Resolved]
  - Vomiting [Recovered/Resolved]
